FAERS Safety Report 10448959 (Version 4)
Quarter: 2014Q4

REPORT INFORMATION
  Report Type: Spontaneous
  Country: JP (occurrence: JP)
  Receive Date: 20140912
  Receipt Date: 20141001
  Transmission Date: 20150528
  Serious: Yes (Hospitalization, Other)
  Sender: FDA-Public Use
  Company Number: JP-BRISTOL-MYERS SQUIBB COMPANY-21144217

PATIENT
  Age: 83 Year
  Sex: Male
  Weight: 55 kg

DRUGS (4)
  1. ELIQUIS [Suspect]
     Active Substance: APIXABAN
     Dosage: RESATRTED ON 07-JUL-2014 AND DISCONTINUED ON 28-AUG-2014.
     Route: 048
     Dates: start: 20140624, end: 20140626
  2. MAXIPIME [Suspect]
     Active Substance: CEFEPIME HYDROCHLORIDE
     Route: 048
     Dates: start: 20140826
  3. HEPARIN [Suspect]
     Active Substance: HEPARIN SODIUM
     Dosage: 3000 DF: 3000 UNITS.?3000IU
     Route: 042
     Dates: start: 20140623, end: 20140626
  4. SOLITA-T NO. 3 [Concomitant]
     Route: 041
     Dates: start: 20140623, end: 20140626

REACTIONS (6)
  - Muscle haemorrhage [Recovering/Resolving]
  - Cerebral haemorrhage [Recovered/Resolved]
  - Anaemia [Recovering/Resolving]
  - Cerebral infarction [Unknown]
  - Cholecystitis [Unknown]
  - Hepatic function abnormal [Unknown]

NARRATIVE: CASE EVENT DATE: 20140625
